FAERS Safety Report 5034400-6 (Version None)
Quarter: 2006Q2

REPORT INFORMATION
  Report Type: 
  Country: None (occurrence: None)
  Receive Date: 20060626
  Receipt Date: 20060329
  Transmission Date: 20061013
  Serious: Yes (Other)
  Sender: FDA-Public Use
  Company Number: PHBS2006JP04853

PATIENT
  Age: 62 Year
  Sex: Male

DRUGS (3)
  1. PREDONINE [Concomitant]
     Dosage: 5 MG/D
     Route: 048
     Dates: start: 20041012
  2. MUCOSTA [Concomitant]
     Dosage: 300 MG/D
     Route: 048
     Dates: start: 20041012
  3. NEORAL [Suspect]
     Indication: APLASTIC ANAEMIA
     Dosage: 200 MG/D
     Route: 048
     Dates: start: 20041019

REACTIONS (2)
  - RETINAL DETACHMENT [None]
  - SURGERY [None]
